FAERS Safety Report 8922720 (Version 17)
Quarter: 2022Q4

REPORT INFORMATION
  Report Type: Other
  Country: CA (occurrence: None)
  Receive Date: 20121123
  Receipt Date: 20221104
  Transmission Date: 20230113
  Serious: Yes (Other)
  Sender: FDA-Public Use
  Company Number: CA-ROCHE-1157438

PATIENT
  Age: 62 Year
  Sex: Female
  Weight: 79.6 kg

DRUGS (14)
  1. ACTEMRA [Suspect]
     Active Substance: TOCILIZUMAB
     Indication: Rheumatoid arthritis
     Route: 042
     Dates: start: 20120921
  2. HYDROXYCHLOROQUINE [Concomitant]
     Active Substance: HYDROXYCHLOROQUINE
  3. RAMIPRIL [Concomitant]
     Active Substance: RAMIPRIL
  4. CRESTOR [Concomitant]
     Active Substance: ROSUVASTATIN CALCIUM
  5. NEXIUM [Concomitant]
     Active Substance: ESOMEPRAZOLE MAGNESIUM
     Route: 048
  6. ZOPICLONE [Concomitant]
     Active Substance: ZOPICLONE
     Route: 048
  7. ASPIRIN [Concomitant]
     Active Substance: ASPIRIN
  8. GRAVOL NATURAL SOURCE [Concomitant]
  9. ROBITUSSIN (GUAIFENESIN) [Concomitant]
     Active Substance: GUAIFENESIN
     Indication: Nasopharyngitis
  10. VENLAFAXINE [Concomitant]
     Active Substance: VENLAFAXINE HYDROCHLORIDE
  11. LORAZEPAM [Concomitant]
     Active Substance: LORAZEPAM
  12. GINGER [Concomitant]
     Active Substance: GINGER
     Indication: Nausea
  13. BISOPROLOL [Concomitant]
     Active Substance: BISOPROLOL
  14. CELECOXIB [Concomitant]
     Active Substance: CELECOXIB

REACTIONS (21)
  - Hypoaesthesia [Recovered/Resolved]
  - Blood urine present [Unknown]
  - Deafness unilateral [Unknown]
  - Bell^s palsy [Unknown]
  - Urinary retention [Unknown]
  - Paraesthesia [Recovered/Resolved]
  - Stress [Recovering/Resolving]
  - Blood pressure increased [Unknown]
  - Pain [Not Recovered/Not Resolved]
  - Influenza like illness [Recovered/Resolved]
  - Skin laceration [Not Recovered/Not Resolved]
  - Vomiting [Recovering/Resolving]
  - Diarrhoea [Recovered/Resolved]
  - Blood urine present [Unknown]
  - Cough [Recovering/Resolving]
  - Paranasal sinus hypersecretion [Recovering/Resolving]
  - Red blood cells urine positive [Unknown]
  - White blood cells urine positive [Unknown]
  - Bilirubin urine present [Unknown]
  - Influenza [Unknown]
  - Nasopharyngitis [Recovering/Resolving]

NARRATIVE: CASE EVENT DATE: 20121101
